FAERS Safety Report 5300118-5 (Version None)
Quarter: 2007Q1

REPORT INFORMATION
  Report Type: 
  Country: None (occurrence: None)
  Receive Date: 20070201
  Receipt Date: 20061103
  Transmission Date: 20070707
  Serious: No
  Sender: FDA-Public Use
  Company Number: 2006PV024529

PATIENT
  Age: 68 Year
  Sex: Female

DRUGS (6)
  1. BYETTA [Suspect]
     Indication: DIABETES MELLITUS NON-INSULIN-DEPENDENT
     Dosage: 10 MCG BID SC ; 5 MCG BID SC ; 10 MCG BID SC ; 5 MCG BID SC
     Route: 058
     Dates: start: 20060901, end: 20061029
  2. BYETTA [Suspect]
     Indication: DIABETES MELLITUS NON-INSULIN-DEPENDENT
     Dosage: 10 MCG BID SC ; 5 MCG BID SC ; 10 MCG BID SC ; 5 MCG BID SC
     Route: 058
     Dates: start: 20061001, end: 20061101
  3. BYETTA [Suspect]
     Indication: DIABETES MELLITUS NON-INSULIN-DEPENDENT
     Dosage: 10 MCG BID SC ; 5 MCG BID SC ; 10 MCG BID SC ; 5 MCG BID SC
     Route: 058
     Dates: start: 20061030, end: 20061113
  4. BYETTA [Suspect]
     Indication: DIABETES MELLITUS NON-INSULIN-DEPENDENT
     Dosage: 10 MCG BID SC ; 5 MCG BID SC ; 10 MCG BID SC ; 5 MCG BID SC
     Route: 058
     Dates: start: 20061101, end: 20061113
  5. LANTUS [Concomitant]
  6. HUMALOG [Concomitant]

REACTIONS (10)
  - ABDOMINAL DISTENSION [None]
  - ABDOMINAL PAIN UPPER [None]
  - BLOOD GLUCOSE DECREASED [None]
  - DIARRHOEA [None]
  - DIZZINESS [None]
  - ENERGY INCREASED [None]
  - FAECAL INCONTINENCE [None]
  - FLATULENCE [None]
  - HEADACHE [None]
  - NAUSEA [None]
